FAERS Safety Report 6456010-6 (Version None)
Quarter: 2009Q4

REPORT INFORMATION
  Report Type: 
  Country: None (occurrence: None)
  Receive Date: 20091125
  Receipt Date: 20091117
  Transmission Date: 20100525
  Serious: Yes (Hospitalization)
  Sender: FDA-Public Use
  Company Number: JRFUSA2000009011

PATIENT
  Age: 24 Year
  Sex: Female

DRUGS (2)
  1. DURAGESIC-100 [Suspect]
     Indication: PAIN
     Route: 048
  2. MEPERIDINE [Suspect]
     Indication: PAIN
     Route: 030

REACTIONS (3)
  - APNOEA [None]
  - CYANOSIS [None]
  - DRUG ABUSE [None]
